FAERS Safety Report 15103560 (Version 1)
Quarter: 2018Q3

REPORT INFORMATION
  Report Type: Spontaneous
  Country: US (occurrence: US)
  Receive Date: 20180703
  Receipt Date: 20180703
  Transmission Date: 20181010
  Serious: Yes (Hospitalization, Other)
  Sender: FDA-Public Use
  Company Number: US-GILEAD-2018-0347929

PATIENT
  Age: 33 Year
  Sex: Male

DRUGS (2)
  1. PREZCOBIX [Suspect]
     Active Substance: COBICISTAT\DARUNAVIR ETHANOLATE
     Indication: PRODUCT USED FOR UNKNOWN INDICATION
     Dosage: UNK
     Route: 065
     Dates: start: 20180521
  2. STRIBILD [Suspect]
     Active Substance: COBICISTAT\ELVITEGRAVIR\EMTRICITABINE\TENOFOVIR DISOPROXIL FUMARATE
     Indication: PRODUCT USED FOR UNKNOWN INDICATION
     Dosage: UNK
     Route: 065

REACTIONS (9)
  - Tachycardia [Recovering/Resolving]
  - Hypokalaemia [Recovering/Resolving]
  - Liver function test increased [Recovering/Resolving]
  - White blood cell count increased [Recovering/Resolving]
  - Renal injury [Recovering/Resolving]
  - Rash [Recovering/Resolving]
  - Drug ineffective [Recovering/Resolving]
  - Pruritus generalised [Recovering/Resolving]
  - Drug resistance [Recovering/Resolving]
